FAERS Safety Report 9230294 (Version 4)
Quarter: 2013Q4

REPORT INFORMATION
  Report Type: Report from Study
  Country: AU (occurrence: AU)
  Receive Date: 20130415
  Receipt Date: 20131223
  Transmission Date: 20140711
  Serious: Yes (Other)
  Sender: FDA-Public Use
  Company Number: PHHY2013AU035380

PATIENT
  Sex: Male

DRUGS (1)
  1. CLOZARIL [Suspect]
     Dosage: 350 MG, UNK
     Dates: start: 20110722

REACTIONS (3)
  - Psychotic disorder [Unknown]
  - Affective disorder [Unknown]
  - Schizoaffective disorder [Unknown]
